FAERS Safety Report 9643074 (Version 2)
Quarter: 2014Q1

REPORT INFORMATION
  Report Type: Spontaneous
  Country: GB (occurrence: None)
  Receive Date: 20131022
  Receipt Date: 20140311
  Transmission Date: 20141002
  Serious: Yes (Hospitalization, Other)
  Sender: FDA-Public Use
  Company Number: CL-528-2013

PATIENT
  Age: 8 Year
  Sex: Female
  Weight: 38.8 kg

DRUGS (6)
  1. METRONIDAZOLE UNK [Suspect]
     Indication: DIARRHOEA HAEMORRHAGIC
     Route: 042
     Dates: start: 20130926, end: 20130930
  2. HYOSCINE BUTYLBROMIDE [Concomitant]
  3. CEFOTAXIME [Concomitant]
  4. CODEINE PHOSPHATE [Concomitant]
  5. ONDANSETRON [Concomitant]
  6. PARACETAMOL [Concomitant]

REACTIONS (2)
  - Haemolytic uraemic syndrome [None]
  - Intravascular haemolysis [None]
